FAERS Safety Report 7988793 (Version 2)
Quarter: 2012Q4

REPORT INFORMATION
  Report Type: 
  Country: CA (occurrence: CA)
  Receive Date: 20110613
  Receipt Date: 20121109
  Transmission Date: 20130627
  Serious: Yes (Other)
  Sender: FDA-Public Use
  Company Number: PHMT2007CA01404

PATIENT
  Sex: Male

DRUGS (1)
  1. SANDOSTATIN LAR [Suspect]
     Indication: NEUROENDOCRINE TUMOUR
     Dosage: 20 mg for every 4 weeks
     Route: 030
     Dates: start: 20050122

REACTIONS (5)
  - Nephrolithiasis [Unknown]
  - Back pain [Unknown]
  - Blood pressure decreased [Unknown]
  - Hyperglycaemia [Unknown]
  - Constipation [Unknown]
